FAERS Safety Report 16613722 (Version 2)
Quarter: 2019Q3

REPORT INFORMATION
  Report Type: Report from Study
  Country: None (occurrence: CA)
  Receive Date: 20190723
  Receipt Date: 20190806
  Transmission Date: 20191004
  Serious: Yes (Other)
  Sender: FDA-Public Use
  Company Number: CA-ABBVIE-19K-028-2857333-00

PATIENT
  Sex: Female

DRUGS (4)
  1. HUMIRA [Suspect]
     Active Substance: ADALIMUMAB
     Route: 058
     Dates: start: 2019
  2. HUMIRA [Suspect]
     Active Substance: ADALIMUMAB
     Route: 058
     Dates: start: 2019, end: 2019
  3. HUMIRA [Suspect]
     Active Substance: ADALIMUMAB
     Indication: COLITIS ULCERATIVE
     Route: 058
     Dates: start: 20190225, end: 20190225
  4. PREDNISONE. [Concomitant]
     Active Substance: PREDNISONE
     Indication: PRODUCT USED FOR UNKNOWN INDICATION

REACTIONS (12)
  - Drug ineffective [Not Recovered/Not Resolved]
  - Pallor [Not Recovered/Not Resolved]
  - Haematochezia [Not Recovered/Not Resolved]
  - Arthritis [Not Recovered/Not Resolved]
  - Folliculitis [Not Recovered/Not Resolved]
  - Frequent bowel movements [Not Recovered/Not Resolved]
  - Lipase decreased [Not Recovered/Not Resolved]
  - Abdominal pain [Not Recovered/Not Resolved]
  - Amylase decreased [Not Recovered/Not Resolved]
  - Back pain [Not Recovered/Not Resolved]
  - Inflammatory bowel disease [Not Recovered/Not Resolved]
  - Weight decreased [Unknown]

NARRATIVE: CASE EVENT DATE: 2019
